FAERS Safety Report 4309996-X (Version None)
Quarter: 2004Q1

REPORT INFORMATION
  Report Type: 
  Country: None (occurrence: None)
  Receive Date: 20040227
  Receipt Date: 20030701
  Transmission Date: 20041129
  Serious: Yes (Hospitalization)
  Sender: FDA-Public Use
  Company Number: 137070USA

PATIENT
  Age: 52 Year
  Sex: Female
  Weight: 95.2554 kg

DRUGS (15)
  1. TRAZODONE [Suspect]
     Indication: DEPRESSION
     Dosage: 50 MILLIGRAM TID ORAL
     Route: 048
     Dates: start: 19880101
  2. L-THYROXINE [Concomitant]
  3. GLUCOPHAGE [Concomitant]
  4. PREVACID [Concomitant]
  5. LEVSIN PB [Concomitant]
  6. CLARINEX [Concomitant]
  7. VITAMIN C [Concomitant]
  8. VITAMIN E [Concomitant]
  9. CALCIUM [Concomitant]
  10. GLUCOSAMINE SULFATE [Concomitant]
  11. MULTI-VITAMIN [Concomitant]
  12. FISH OIL [Concomitant]
  13. ESTRADIOL [Concomitant]
  14. PROMETRIUM [Concomitant]
  15. NASONEX [Concomitant]

REACTIONS (2)
  - ANAEMIA [None]
  - DYSPNOEA [None]
